FAERS Safety Report 6531628-0 (Version None)
Quarter: 2010Q1

REPORT INFORMATION
  Report Type: 
  Country: None (occurrence: None)
  Receive Date: 20100108
  Receipt Date: 20091230
  Transmission Date: 20100710
  Serious: Yes (Other)
  Sender: FDA-Public Use
  Company Number: US-PFIZER INC-2010000133

PATIENT
  Sex: Female
  Weight: 68.027 kg

DRUGS (6)
  1. QUINAPRIL HCL [Suspect]
     Indication: HYPERTENSION
     Dosage: 10 MG, 1X/DAY
     Route: 048
     Dates: start: 20090731, end: 20091214
  2. PLAVIX [Concomitant]
     Dosage: UNK
  3. ACETYLSALICYLIC ACID [Concomitant]
     Dosage: 81 MG, UNK
  4. ALPRAZOLAM [Concomitant]
     Dosage: UNK
  5. PROVERA [Concomitant]
     Dosage: UNK
  6. LOPRESSOR [Concomitant]
     Dosage: UNK

REACTIONS (9)
  - ASTHENIA [None]
  - BLOOD MAGNESIUM INCREASED [None]
  - CORONARY ARTERIAL STENT INSERTION [None]
  - FLUSHING [None]
  - HIGH DENSITY LIPOPROTEIN DECREASED [None]
  - HYPERHIDROSIS [None]
  - LOW DENSITY LIPOPROTEIN INCREASED [None]
  - RED BLOOD CELL COUNT INCREASED [None]
  - TOTAL CHOLESTEROL/HDL RATIO DECREASED [None]
